FAERS Safety Report 15274331 (Version 2)
Quarter: 2018Q3

REPORT INFORMATION
  Report Type: Spontaneous
  Country: US (occurrence: US)
  Receive Date: 20180814
  Receipt Date: 20180814
  Transmission Date: 20181010
  Serious: No
  Sender: FDA-Public Use
  Company Number: US-AUROBINDO-AUR-APU-2017-37031

PATIENT

DRUGS (1)
  1. LEVOFLOXACIN 750MG [Suspect]
     Active Substance: LEVOFLOXACIN
     Indication: PNEUMONIA
     Dosage: 750 MG, UNK
     Route: 065

REACTIONS (1)
  - Pain in extremity [Unknown]
